FAERS Safety Report 13659935 (Version 4)
Quarter: 2018Q2

REPORT INFORMATION
  Report Type: Spontaneous
  Country: DK (occurrence: DK)
  Receive Date: 20170616
  Receipt Date: 20180510
  Transmission Date: 20180711
  Serious: Yes (Other)
  Sender: FDA-Public Use
  Company Number: DK-PFIZER INC-2017258254

PATIENT
  Age: 16 Year
  Sex: Male

DRUGS (1)
  1. IBUPROFEN. [Suspect]
     Active Substance: IBUPROFEN
     Indication: SUICIDAL IDEATION
     Dosage: 50 DF, UNK (200 MG IBUPROFEN TABLETS (EQUIVALENT TO A 161 MG/KG BOLUS))
     Route: 048

REACTIONS (3)
  - Pancreatitis acute [Recovered/Resolved]
  - Intentional overdose [Unknown]
  - Suicide attempt [Unknown]
